FAERS Safety Report 4415396-4 (Version None)
Quarter: 2004Q2

REPORT INFORMATION
  Report Type: 
  Country: None (occurrence: None)
  Receive Date: 20040630
  Receipt Date: 20031201
  Transmission Date: 20050107
  Serious: Yes (Hospitalization)
  Sender: FDA-Public Use
  Company Number: 2003039026

PATIENT
  Age: 78 Year
  Sex: Female
  Weight: 51.2565 kg

DRUGS (4)
  1. ZOLOFT [Suspect]
     Indication: DEPRESSION
     Dosage: 50 MG (DAILY), ORAL
     Route: 048
  2. ALL OTHER THERAPEUTIC PRODUCTS (ALL OTHER THERAPEUTIC PRODUCTS) [Concomitant]
  3. MYLANTA (MAGNESIUM HYDROXIDE, ALUMINIUM HYDROXIDE GEL, DRIED, SIMETICO [Concomitant]
  4. GENITO URINARY SYSTEM AND SEX HORMONES (GENITO URINARY SYSTEM AND SEX [Concomitant]

REACTIONS (7)
  - ANXIETY [None]
  - DIARRHOEA [None]
  - DISCOMFORT [None]
  - GASTRIC ULCER [None]
  - IMPAIRED WORK ABILITY [None]
  - NAUSEA [None]
  - TREMOR [None]
